FAERS Safety Report 5729848-8 (Version None)
Quarter: 2008Q2

REPORT INFORMATION
  Report Type: 
  Country: None (occurrence: None)
  Receive Date: 20080502
  Receipt Date: 20080425
  Transmission Date: 20081010
  Serious: Yes (Other)
  Sender: FDA-Public Use
  Company Number: 2008010735

PATIENT
  Age: 51 Year
  Sex: Male
  Weight: 77.1115 kg

DRUGS (2)
  1. ROGAINE 5 [Suspect]
     Indication: ALOPECIA
     Dosage: RECOMMENDED DOSAGE 2X DAY, TOPICAL
     Route: 061
     Dates: start: 20070801, end: 20080307
  2. ROGAINE [Concomitant]

REACTIONS (2)
  - HAIR DISORDER [None]
  - SCAR [None]
